FAERS Safety Report 15417932 (Version 3)
Quarter: 2018Q4

REPORT INFORMATION
  Report Type: Report from Study
  Country: US (occurrence: US)
  Receive Date: 20180924
  Receipt Date: 20181218
  Transmission Date: 20190204
  Serious: Yes (Other)
  Sender: FDA-Public Use
  Company Number: US-ROCHE-2186878

PATIENT
  Age: 37 Year
  Sex: Female
  Weight: 53.12 kg

DRUGS (2)
  1. OCREVUS [Suspect]
     Active Substance: OCRELIZUMAB
     Indication: RELAPSING MULTIPLE SCLEROSIS
     Dosage: SECOND INFUSION WAS GIVEN ON 26/MAR/2018
     Route: 042
     Dates: start: 20180312
  2. OCREVUS [Suspect]
     Active Substance: OCRELIZUMAB
     Indication: SECONDARY PROGRESSIVE MULTIPLE SCLEROSIS

REACTIONS (10)
  - Skin infection [Recovered/Resolved]
  - Cough [Not Recovered/Not Resolved]
  - Feeling cold [Recovered/Resolved]
  - Bronchitis [Not Recovered/Not Resolved]
  - Tremor [Unknown]
  - Oral herpes [Recovered/Resolved]
  - Pyrexia [Recovered/Resolved]
  - Urinary tract infection [Recovered/Resolved]
  - Chills [Unknown]
  - Rash [Unknown]

NARRATIVE: CASE EVENT DATE: 20180312
